FAERS Safety Report 21075493 (Version 2)
Quarter: 2023Q2

REPORT INFORMATION
  Report Type: Spontaneous
  Country: US (occurrence: US)
  Receive Date: 20220713
  Receipt Date: 20230629
  Transmission Date: 20230722
  Serious: Yes (Other)
  Sender: FDA-Public Use
  Company Number: US-BAYER-2022A096776

PATIENT
  Age: 29 Year
  Sex: Female
  Weight: 78.912 kg

DRUGS (1)
  1. MIRENA [Suspect]
     Active Substance: LEVONORGESTREL
     Indication: Contraception
     Dosage: 20?G/DAY
     Route: 015
     Dates: start: 20220217

REACTIONS (3)
  - Pregnancy with contraceptive device [None]
  - Gestational diabetes [None]
  - Device ineffective [None]

NARRATIVE: CASE EVENT DATE: 20220607
